FAERS Safety Report 8800130 (Version 3)
Quarter: 2012Q4

REPORT INFORMATION
  Report Type: Report from Study
  Country: DE (occurrence: DE)
  Receive Date: 20120921
  Receipt Date: 20121029
  Transmission Date: 20130627
  Serious: Yes (Life-Threatening, Hospitalization)
  Sender: FDA-Public Use
  Company Number: DE-BRISTOL-MYERS SQUIBB COMPANY-16966129

PATIENT
  Age: 71 Year
  Sex: Male
  Weight: 81 kg

DRUGS (3)
  1. CETUXIMAB [Suspect]
     Indication: ADENOCARCINOMA
     Dates: end: 20120830
  2. CARBOPLATIN [Suspect]
     Indication: ADENOCARCINOMA
     Dates: end: 20120830
  3. PACLITAXEL [Suspect]
     Indication: ADENOCARCINOMA
     Dates: end: 20120830

REACTIONS (1)
  - Pulmonary embolism [Recovered/Resolved]
